FAERS Safety Report 7555797-9 (Version None)
Quarter: 2011Q2

REPORT INFORMATION
  Report Type: 
  Country: None (occurrence: None)
  Receive Date: 20110618
  Receipt Date: 20110531
  Transmission Date: 20111010
  Serious: Yes (Disabling, Other)
  Sender: FDA-Public Use
  Company Number: US-BAYER-2011-011031

PATIENT
  Sex: Female
  Weight: 58.957 kg

DRUGS (10)
  1. YAZ [Suspect]
     Indication: ACNE
  2. YASMIN [Suspect]
     Indication: ACNE
     Dosage: UNK
     Dates: start: 20030101, end: 20090101
  3. DROSPIRENONE AND ETHINYL ESTRADIOL [Suspect]
     Indication: PREMENSTRUAL SYNDROME
  4. DUAC [Concomitant]
     Route: 061
  5. YAZ [Suspect]
     Indication: PREMENSTRUAL SYNDROME
     Dosage: UNK
     Dates: start: 20030101, end: 20090101
  6. HYOSCYAMINE [Concomitant]
     Indication: ABDOMINAL DISTENSION
     Dosage: UNK
     Dates: start: 20090923
  7. YASMIN [Suspect]
     Indication: PREMENSTRUAL SYNDROME
  8. CLARINEX [Concomitant]
  9. DROSPIRENONE AND ETHINYL ESTRADIOL [Suspect]
     Indication: ACNE
     Dosage: UNK
     Dates: start: 20030101, end: 20090101
  10. VALTREX [Concomitant]
     Route: 048

REACTIONS (7)
  - GALLBLADDER DISORDER [None]
  - CHOLECYSTITIS CHRONIC [None]
  - DEFORMITY [None]
  - BILIARY DYSKINESIA [None]
  - FAT INTOLERANCE [None]
  - PAIN [None]
  - ABDOMINAL DISTENSION [None]
